FAERS Safety Report 19418715 (Version 1)
Quarter: 2021Q2

REPORT INFORMATION
  Report Type: Report from Study
  Country: GB (occurrence: GB)
  Receive Date: 20210615
  Receipt Date: 20210615
  Transmission Date: 20210717
  Serious: Yes (Other)
  Sender: FDA-Public Use
  Company Number: GB-MYLANLABS-2021M1034747

PATIENT
  Age: 43 Year
  Sex: Female

DRUGS (13)
  1. TRASTUZUMAB. [Suspect]
     Active Substance: TRASTUZUMAB
     Indication: BREAST CANCER
     Dosage: 483 MILLIGRAM/KILOGRAM
     Route: 041
     Dates: start: 20170228
  2. DOCETAXEL. [Suspect]
     Active Substance: DOCETAXEL
     Dosage: 148 MILLIGRAM
     Route: 042
     Dates: start: 20170412
  3. TRASTUZUMAB. [Suspect]
     Active Substance: TRASTUZUMAB
     Dosage: 514.5 MILLIGRAM
     Route: 041
     Dates: start: 20170412, end: 20170412
  4. EPIRUBICIN [Suspect]
     Active Substance: EPIRUBICIN
     Dosage: 180 MILLIGRAM
     Route: 042
     Dates: start: 20180223, end: 20180427
  5. SENNA                              /00142201/ [Concomitant]
     Active Substance: SENNA LEAF
     Indication: CONSTIPATION
     Dosage: 15 MILLIGRAM, BID
     Route: 048
  6. DOCETAXEL. [Suspect]
     Active Substance: DOCETAXEL
     Indication: BREAST CANCER
     Dosage: 148 MILLIGRAM
     Route: 042
     Dates: start: 20170412, end: 20170614
  7. PERTUZUMAB. [Suspect]
     Active Substance: PERTUZUMAB
     Indication: BREAST CANCER
     Dosage: 420 MILLIGRAM/KILOGRAM
     Route: 042
     Dates: start: 20170412
  8. CAPECITABINE. [Suspect]
     Active Substance: CAPECITABINE
     Indication: BREAST CANCER
     Dosage: 2000 MILLIGRAM, BID
     Route: 048
     Dates: start: 20200721
  9. EPIRUBICIN [Suspect]
     Active Substance: EPIRUBICIN
     Indication: BREAST CANCER
     Dosage: 140 MILLIGRAM
     Route: 042
     Dates: start: 20180525, end: 20180615
  10. AMOXIL                             /00249601/ [Concomitant]
     Active Substance: AMOXICILLIN
     Indication: LOWER RESPIRATORY TRACT INFECTION
     Dosage: 500 MILLIGRAM, TID
     Route: 048
     Dates: start: 20180102, end: 20180107
  11. PERTUZUMAB. [Suspect]
     Active Substance: PERTUZUMAB
     Dosage: 420 MILLIGRAM/KILOGRAM
     Route: 042
     Dates: start: 20170412, end: 20180112
  12. DIFFLAM [Concomitant]
     Indication: MOUTH ULCERATION
     Dosage: 15 MILLILITER, PRN
     Route: 048
  13. LACTULOSE. [Concomitant]
     Active Substance: LACTULOSE
     Indication: CONSTIPATION
     Dosage: 15 MILLILITER, QD
     Route: 048

REACTIONS (1)
  - Systolic dysfunction [Unknown]

NARRATIVE: CASE EVENT DATE: 20210216
